FAERS Safety Report 21750804 (Version 1)
Quarter: 2022Q4

REPORT INFORMATION
  Report Type: Report from Study
  Country: US (occurrence: US)
  Receive Date: 20221219
  Receipt Date: 20221219
  Transmission Date: 20230112
  Serious: No
  Sender: FDA-Public Use
  Company Number: US-ABBVIE-4196943

PATIENT
  Sex: Male

DRUGS (5)
  1. SKYRIZI [Suspect]
     Active Substance: RISANKIZUMAB-RZAA
     Indication: Psoriasis
     Dosage: FORM STRENGTH: 150 MG
     Route: 058
     Dates: start: 202101
  2. LEVOTHYROXINE 75 MCG CAPSULE [Concomitant]
     Indication: Product used for unknown indication
  3. SKYRIZI [Suspect]
     Active Substance: RISANKIZUMAB-RZAA
  4. FENOFIBRATE 120 MG TABLET [Concomitant]
     Indication: Product used for unknown indication
  5. IBUPROFEN 200 MG TABLET [Concomitant]
     Indication: Product used for unknown indication

REACTIONS (4)
  - Skin discomfort [Unknown]
  - Pruritus [Unknown]
  - Skin haemorrhage [Unknown]
  - Nasopharyngitis [Unknown]

NARRATIVE: CASE EVENT DATE: 20220101
